FAERS Safety Report 4624826-4 (Version None)
Quarter: 2005Q2

REPORT INFORMATION
  Report Type: 
  Country: None (occurrence: None)
  Receive Date: 20050401
  Receipt Date: 20050322
  Transmission Date: 20051028
  Serious: Yes (Hospitalization)
  Sender: FDA-Public Use
  Company Number: JP-JNJFOC-20050200680

PATIENT
  Sex: Female
  Weight: 44 kg

DRUGS (11)
  1. REMICADE [Suspect]
     Route: 042
  2. REMICADE [Suspect]
     Route: 042
  3. REMICADE [Suspect]
     Indication: CROHN'S DISEASE
     Route: 042
  4. PREDONINE [Concomitant]
     Indication: CROHN'S DISEASE
     Route: 049
  5. IMRAN [Concomitant]
     Indication: CROHN'S DISEASE
     Route: 049
  6. SALAZOPYRIN [Concomitant]
     Indication: CROHN'S DISEASE
     Route: 049
  7. TPN [Concomitant]
  8. TPN [Concomitant]
  9. TPN [Concomitant]
  10. TPN [Concomitant]
  11. ENTERAL NUTRITION [Concomitant]

REACTIONS (2)
  - DRUG INEFFECTIVE [None]
  - FISTULA [None]
